FAERS Safety Report 8234167-4 (Version None)
Quarter: 2012Q1

REPORT INFORMATION
  Report Type: 
  Country: None (occurrence: None)
  Receive Date: 20120326
  Receipt Date: 20120320
  Transmission Date: 20120608
  Serious: Yes (Life-Threatening, Hospitalization)
  Sender: FDA-Public Use
  Company Number: FR-BRISTOL-MYERS SQUIBB COMPANY-16467946

PATIENT
  Age: 88 Year
  Sex: Female

DRUGS (6)
  1. ATORVASTATIN [Concomitant]
  2. CYMBALTA [Concomitant]
  3. ASPIRIN [Concomitant]
  4. ATENOLOL [Concomitant]
  5. KALEORID [Concomitant]
  6. COUMADIN [Suspect]
     Indication: PULMONARY EMBOLISM
     Route: 048
     Dates: start: 20111215, end: 20120110

REACTIONS (3)
  - INTERNATIONAL NORMALISED RATIO INCREASED [None]
  - CEREBRAL HAEMATOMA [None]
  - FALL [None]
